FAERS Safety Report 11851960 (Version 3)
Quarter: 2017Q2

REPORT INFORMATION
  Report Type: Report from Study
  Country: AU (occurrence: AU)
  Receive Date: 20151218
  Receipt Date: 20170421
  Transmission Date: 20170829
  Serious: Yes (Hospitalization)
  Sender: FDA-Public Use
  Company Number: AU-SA-2015SA149800

PATIENT
  Age: 56 Year
  Sex: Male

DRUGS (7)
  1. PREDNISONE. [Concomitant]
     Active Substance: PREDNISONE
     Indication: ASTHMA
  2. BEROCCA [Concomitant]
     Active Substance: VITAMINS
  3. LEMTRADA [Suspect]
     Active Substance: ALEMTUZUMAB
     Indication: RELAPSING-REMITTING MULTIPLE SCLEROSIS
     Route: 041
     Dates: start: 20150907, end: 20150911
  4. LEMTRADA [Suspect]
     Active Substance: ALEMTUZUMAB
     Indication: RELAPSING-REMITTING MULTIPLE SCLEROSIS
     Route: 041
     Dates: start: 20160905, end: 20160907
  5. SINGULAIR [Concomitant]
     Active Substance: MONTELUKAST SODIUM
     Indication: ASTHMA
  6. VITAMIN E [Concomitant]
     Active Substance: .ALPHA.-TOCOPHEROL
  7. MINERALS NOS/VITAMINS NOS [Concomitant]

REACTIONS (19)
  - Hyperhidrosis [Unknown]
  - Myalgia [Unknown]
  - Urticaria [Unknown]
  - Lymphadenopathy [Unknown]
  - Haemoglobin decreased [Unknown]
  - Lymphocyte count decreased [Unknown]
  - Loss of consciousness [Unknown]
  - Dyspnoea exertional [Unknown]
  - Haematocrit decreased [Unknown]
  - Rash pruritic [Not Recovered/Not Resolved]
  - Night sweats [Unknown]
  - Urine albumin/creatinine ratio decreased [Unknown]
  - Rash [Recovered/Resolved]
  - Productive cough [Unknown]
  - Pneumonia viral [Recovered/Resolved]
  - Oropharyngeal pain [Unknown]
  - Pyrexia [Unknown]
  - Fatigue [Recovering/Resolving]
  - Blood thyroid stimulating hormone decreased [Unknown]

NARRATIVE: CASE EVENT DATE: 201509
